FAERS Safety Report 14538413 (Version 1)
Quarter: 2018Q1

REPORT INFORMATION
  Report Type: Spontaneous
  Country: SE (occurrence: SE)
  Receive Date: 20180216
  Receipt Date: 20180216
  Transmission Date: 20180509
  Serious: Yes (Death, Hospitalization, Other)
  Sender: FDA-Public Use
  Company Number: SE-BAXTER-2018BAX005123

PATIENT
  Age: 61 Year
  Sex: Male

DRUGS (14)
  1. PREDNISONE. [Suspect]
     Active Substance: PREDNISONE
     Route: 065
  2. SENDOXAN 1000 MG PULVER TILL INJEKTIONSV?TSKA, L?SNING [Suspect]
     Active Substance: CYCLOPHOSPHAMIDE
     Dosage: AT 14 DAY INTERVALS
     Route: 065
  3. MABTHERA [Suspect]
     Active Substance: RITUXIMAB
     Indication: DIFFUSE LARGE B-CELL LYMPHOMA
     Dosage: DOSAGE FORM: UNSPECIFIED
     Route: 037
  4. ZEFFIX [Concomitant]
     Active Substance: LAMIVUDINE
     Route: 065
  5. PREDNISONE. [Suspect]
     Active Substance: PREDNISONE
     Indication: DIFFUSE LARGE B-CELL LYMPHOMA
     Dosage: DOSAGE FORM: UNSPECIFIED
     Route: 065
  6. VINCRISTINE [Suspect]
     Active Substance: VINCRISTINE
     Route: 065
  7. VINCRISTINE [Suspect]
     Active Substance: VINCRISTINE
     Indication: DIFFUSE LARGE B-CELL LYMPHOMA
     Dosage: DOSAGE FORM: UNSPECIFIED
     Route: 042
  8. DOXORUBICIN [Suspect]
     Active Substance: DOXORUBICIN
     Indication: DIFFUSE LARGE B-CELL LYMPHOMA
     Route: 065
  9. DOXORUBICIN [Suspect]
     Active Substance: DOXORUBICIN
     Route: 065
  10. CORTISONE [Concomitant]
     Active Substance: CORTISONE\HYDROCORTISONE
     Indication: PRODUCT USED FOR UNKNOWN INDICATION
     Route: 065
  11. METHOTREXATE. [Suspect]
     Active Substance: METHOTREXATE
     Indication: DIFFUSE LARGE B-CELL LYMPHOMA
     Route: 037
  12. SENDOXAN 1000 MG PULVER TILL INJEKTIONSV?TSKA, L?SNING [Suspect]
     Active Substance: CYCLOPHOSPHAMIDE
     Indication: DIFFUSE LARGE B-CELL LYMPHOMA
     Dosage: AT 14 DAY INTERVALS
     Route: 065
  13. VINCRISTINE [Suspect]
     Active Substance: VINCRISTINE
     Dosage: DOSAGE FORM: UNSPECIFIED
     Route: 042
  14. ZEFFIX [Concomitant]
     Active Substance: LAMIVUDINE
     Indication: HEPATITIS B
     Route: 065

REACTIONS (17)
  - Motor dysfunction [Fatal]
  - Dysarthria [Fatal]
  - Disease progression [Fatal]
  - Dyskinesia [Fatal]
  - Dysphagia [Fatal]
  - Gait inability [Fatal]
  - Speech disorder [Fatal]
  - Neurological decompensation [Fatal]
  - Respiratory tract infection [Unknown]
  - Extensor plantar response [Fatal]
  - Asthenia [Fatal]
  - JC virus infection [Unknown]
  - White matter lesion [Fatal]
  - Dysstasia [Fatal]
  - Diplopia [Fatal]
  - Neurological symptom [Fatal]
  - Progressive multifocal leukoencephalopathy [Fatal]
